FAERS Safety Report 5925398-4 (Version None)
Quarter: 2008Q4

REPORT INFORMATION
  Report Type: 
  Country: None (occurrence: None)
  Receive Date: 20081020
  Receipt Date: 20081020
  Transmission Date: 20090506
  Serious: Yes (Hospitalization, Other)
  Sender: FDA-Public Use
  Company Number: None

PATIENT
  Age: 57 Year
  Sex: Male
  Weight: 86.1834 kg

DRUGS (1)
  1. LEVAQUIN [Suspect]
     Indication: PROSTATITIS
     Dosage: 500 MG ONCE DAILY PO
     Route: 048
     Dates: start: 20080701, end: 20080801

REACTIONS (8)
  - ANXIETY [None]
  - DEPRESSION [None]
  - INSOMNIA [None]
  - MUSCLE ATROPHY [None]
  - MUSCULAR WEAKNESS [None]
  - PAROSMIA [None]
  - TENDON PAIN [None]
  - WEIGHT DECREASED [None]
